FAERS Safety Report 6575284-4 (Version None)
Quarter: 2010Q1

REPORT INFORMATION
  Report Type: 
  Country: None (occurrence: None)
  Receive Date: 20100201
  Receipt Date: 20091229
  Transmission Date: 20100710
  Serious: Yes (Hospitalization, Other)
  Sender: FDA-Public Use
  Company Number: 2009-00115

PATIENT
  Age: 68 Year
  Sex: Male
  Weight: 75 kg

DRUGS (7)
  1. SIMVASTATIN [Suspect]
     Indication: DRUG USE FOR UNKNOWN INDICATION
  2. LIPITOR [Suspect]
     Indication: DRUG USE FOR UNKNOWN INDICATION
  3. LISINOPRIL [Concomitant]
  4. AMLODIPINE [Concomitant]
  5. ACETYLSALICYLIC AICD (ASPIRIN) [Concomitant]
  6. ATENOLOL [Concomitant]
  7. METFORMIN HYDROCHLORIDE   (GLUCOPHAGE SR) [Concomitant]

REACTIONS (4)
  - ANGIOPLASTY [None]
  - CORONARY ARTERY BYPASS [None]
  - DRUG INTOLERANCE [None]
  - MYALGIA [None]
